FAERS Safety Report 8521379 (Version 2)
Quarter: 2013Q3

REPORT INFORMATION
  Report Type: Spontaneous
  Country: US (occurrence: US)
  Receive Date: 20120419
  Receipt Date: 20130822
  Transmission Date: 20140515
  Serious: Yes (Hospitalization, Disabling, Other)
  Sender: FDA-Public Use
  Company Number: US-BAYER-2012-037367

PATIENT
  Age: 30 Year
  Sex: Female

DRUGS (1)
  1. AVELOX [Suspect]
     Indication: RESPIRATORY TRACT INFECTION
     Dosage: 400 MG, QD
     Dates: start: 20100212, end: 20100219

REACTIONS (11)
  - Uveitis [Not Recovered/Not Resolved]
  - Blindness [Not Recovered/Not Resolved]
  - Ocular hyperaemia [Not Recovered/Not Resolved]
  - Lacrimation increased [Not Recovered/Not Resolved]
  - Pupillary reflex impaired [Not Recovered/Not Resolved]
  - Mydriasis [Not Recovered/Not Resolved]
  - Iris transillumination defect [Not Recovered/Not Resolved]
  - Optic atrophy [Not Recovered/Not Resolved]
  - Glaucoma [Not Recovered/Not Resolved]
  - Multiple sclerosis [Not Recovered/Not Resolved]
  - Disability [Not Recovered/Not Resolved]
